FAERS Safety Report 24408255 (Version 3)
Quarter: 2025Q3

REPORT INFORMATION
  Report Type: Report from Study
  Country: EU (occurrence: EU)
  Receive Date: 20241007
  Receipt Date: 20250905
  Transmission Date: 20251021
  Serious: No
  Sender: JAZZ
  Company Number: EU-JAZZ PHARMACEUTICALS-2024-IT-016773

PATIENT
  Age: 76 Year

DRUGS (1)
  1. VYXEOS [Suspect]
     Active Substance: CYTARABINE\DAUNORUBICIN
     Indication: Acute myeloid leukaemia

REACTIONS (7)
  - Aphthous ulcer [Recovered/Resolved]
  - Conjunctival haemorrhage [Recovered/Resolved]
  - Skin haemorrhage [Recovered/Resolved]
  - Blood bilirubin increased [Recovered/Resolved]
  - Blood alkaline phosphatase increased [Recovered/Resolved]
  - Aspartate aminotransferase increased [Recovered/Resolved]
  - Alanine aminotransferase increased [Recovered/Resolved]

NARRATIVE: CASE EVENT DATE: 20240626
